FAERS Safety Report 8885259 (Version 2)
Quarter: 2013Q3

REPORT INFORMATION
  Report Type: Spontaneous
  Country: JP (occurrence: JP)
  Receive Date: 20121105
  Receipt Date: 20130930
  Transmission Date: 20140515
  Serious: Yes (Life-Threatening)
  Sender: FDA-Public Use
  Company Number: JP-009507513-1210JPN007780

PATIENT
  Age: 47 Year
  Sex: Male
  Weight: 100 kg

DRUGS (8)
  1. BRIDION [Suspect]
     Indication: NEUROMUSCULAR BLOCKADE REVERSAL
     Dosage: 200 MG, QD
     Route: 042
     Dates: start: 20120914, end: 20120914
  2. ESLAX INTRAVENOUS 50MG/5.0ML [Concomitant]
     Indication: NEUROMUSCULAR BLOCKING THERAPY
     Dosage: GROSS WEIGHT 85 MG
     Route: 042
     Dates: start: 20120913, end: 20120914
  3. PROPOFOL [Concomitant]
     Indication: GENERAL ANAESTHESIA
     Dosage: 180 MG, QD
     Route: 042
     Dates: start: 20120913
  4. FENTANYL [Concomitant]
     Indication: GENERAL ANAESTHESIA
     Dosage: 0.1 MG, TID
     Route: 042
     Dates: start: 20120913, end: 20120914
  5. FENTANYL [Concomitant]
     Indication: ANALGESIC THERAPY
  6. ULTIVA [Concomitant]
     Indication: GENERAL ANAESTHESIA
     Dosage: GROSS WEIGHT 1 MG
     Route: 042
     Dates: start: 20120913, end: 20120914
  7. SEVOFLURANE [Concomitant]
     Indication: GENERAL ANAESTHESIA
     Dosage: UNK
     Route: 055
     Dates: start: 20120913, end: 20120914
  8. NEOSYNESIN [Concomitant]
     Indication: BLOOD PRESSURE MANAGEMENT
     Dosage: GROSS WEIGHT 0.3 MG
     Route: 042
     Dates: start: 20120913

REACTIONS (1)
  - Pulmonary oedema [Recovered/Resolved]
